FAERS Safety Report 6790127-1 (Version None)
Quarter: 2010Q2

REPORT INFORMATION
  Report Type: 
  Country: None (occurrence: None)
  Receive Date: 20100624
  Receipt Date: 20100614
  Transmission Date: 20101027
  Serious: Yes (Other)
  Sender: FDA-Public Use
  Company Number: FR-NOVOPROD-308637

PATIENT
  Age: 10 Year
  Sex: Female
  Weight: 21 kg

DRUGS (2)
  1. NORDITROPIN [Suspect]
     Indication: GROWTH HORMONE DEFICIENCY
     Dosage: 0.72 MG DAILY, 6 DAYS/WEEK
     Dates: start: 20100317
  2. NORDITROPIN [Suspect]
     Dosage: 0.70 MG DAILY, 6 DAYS/WEEK

REACTIONS (1)
  - ALOPECIA [None]
